FAERS Safety Report 20175329 (Version 1)
Quarter: 2021Q4

REPORT INFORMATION
  Report Type: Spontaneous
  Country: US (occurrence: US)
  Receive Date: 20211213
  Receipt Date: 20211213
  Transmission Date: 20220303
  Serious: No
  Sender: FDA-Public Use
  Company Number: US-BoehringerIngelheim-2021-BI-143162

PATIENT

DRUGS (4)
  1. MOBIC [Suspect]
     Active Substance: MELOXICAM
     Indication: Pain
  2. TYLENOL [Suspect]
     Active Substance: ACETAMINOPHEN
     Indication: Pain
  3. LIDOCAINE [Suspect]
     Active Substance: LIDOCAINE
     Indication: Pain
  4. CANNABIDIOL [Suspect]
     Active Substance: CANNABIDIOL
     Indication: Pain

REACTIONS (1)
  - Drug ineffective [Unknown]
